FAERS Safety Report 14364169 (Version 4)
Quarter: 2018Q2

REPORT INFORMATION
  Report Type: Spontaneous
  Country: US (occurrence: US)
  Receive Date: 20180108
  Receipt Date: 20180607
  Transmission Date: 20180711
  Serious: No
  Sender: FDA-Public Use
  Company Number: US-BRISTOL-MYERS SQUIBB COMPANY-BMS-2018-000969

PATIENT
  Sex: Female
  Weight: 84.81 kg

DRUGS (2)
  1. ORENCIA [Suspect]
     Active Substance: ABATACEPT
     Indication: RHEUMATOID ARTHRITIS
     Dosage: 125 MG/ML, QWK
     Route: 058
     Dates: start: 201309
  2. ORENCIA [Suspect]
     Active Substance: ABATACEPT
     Indication: BURSITIS
     Route: 065

REACTIONS (4)
  - Swelling [Unknown]
  - Pain in extremity [Unknown]
  - Nasopharyngitis [Unknown]
  - Injection site reaction [Unknown]
